FAERS Safety Report 14265528 (Version 1)
Quarter: 2017Q4

REPORT INFORMATION
  Report Type: Report from Study
  Country: US (occurrence: US)
  Receive Date: 20171208
  Receipt Date: 20171208
  Transmission Date: 20180321
  Serious: No
  Sender: FDA-Public Use
  Company Number: PHEH2017US039482

PATIENT
  Age: 11 Year
  Sex: Female
  Weight: 45 kg

DRUGS (1)
  1. OMNITROPE [Suspect]
     Active Substance: SOMATROPIN
     Indication: GROWTH HORMONE DEFICIENCY
     Dosage: 2.3 MG,(ONCE DAILY 6 DAYS PER WEEK)
     Route: 058
     Dates: start: 20170317

REACTIONS (4)
  - Eye infection [Recovered/Resolved]
  - Intraocular pressure increased [Not Recovered/Not Resolved]
  - Conjunctivitis allergic [Unknown]
  - Headache [Recovering/Resolving]

NARRATIVE: CASE EVENT DATE: 20170501
